FAERS Safety Report 16645770 (Version 8)
Quarter: 2019Q4

REPORT INFORMATION
  Report Type: Report from Study
  Country: PL (occurrence: PL)
  Receive Date: 20190730
  Receipt Date: 20191210
  Transmission Date: 20200122
  Serious: Yes (Hospitalization)
  Sender: FDA-Public Use
  Company Number: PL-ROCHE-2358301

PATIENT
  Age: 20 Year
  Sex: Female
  Weight: 64 kg

DRUGS (24)
  1. METHYLPREDNISOLONE. [Suspect]
     Active Substance: METHYLPREDNISOLONE
     Dosage: ONCE BEFORE INFUSION?VISIT 5
     Route: 042
     Dates: start: 20180315, end: 20180315
  2. ACIPREX [ESCITALOPRAM OXALATE] [Concomitant]
     Route: 048
     Dates: start: 20190111
  3. ZYRTEC [Concomitant]
     Active Substance: CETIRIZINE HYDROCHLORIDE
     Dosage: ONCE BEFORE INFUSION
     Route: 048
     Dates: start: 20190131, end: 20190131
  4. OCRELIZUMAB. [Suspect]
     Active Substance: OCRELIZUMAB
     Dosage: VISIT 3 (1)
     Route: 042
     Dates: start: 20170928
  5. OCRELIZUMAB. [Suspect]
     Active Substance: OCRELIZUMAB
     Dosage: VISIT 5 (1)
     Route: 042
     Dates: start: 20180315
  6. OCRELIZUMAB. [Suspect]
     Active Substance: OCRELIZUMAB
     Dosage: VISIT 6
     Route: 042
     Dates: start: 20180816
  7. ZYRTEC [Concomitant]
     Active Substance: CETIRIZINE HYDROCHLORIDE
     Dosage: ONCE BEFORE INFUSION
     Route: 048
     Dates: start: 20180816, end: 20180816
  8. METHYLPREDNISOLONE. [Suspect]
     Active Substance: METHYLPREDNISOLONE
     Dosage: ONCE BEFORE INFUSION?VISIT 3
     Route: 042
     Dates: start: 20170928, end: 20170928
  9. METHYLPREDNISOLONE. [Suspect]
     Active Substance: METHYLPREDNISOLONE
     Dosage: ONCE BEFORE INFUSION?VISIT 6
     Route: 042
     Dates: start: 20180816, end: 20180816
  10. METHYLPREDNISOLONE. [Suspect]
     Active Substance: METHYLPREDNISOLONE
     Indication: RELAPSING-REMITTING MULTIPLE SCLEROSIS
     Dosage: ONCE BEFORE INFUSION?BASELINE (VISIT 2)
     Route: 042
     Dates: start: 20170914, end: 20170914
  11. ACIPREX [ESCITALOPRAM OXALATE] [Concomitant]
     Indication: DEPRESSION
     Route: 048
     Dates: start: 20190104, end: 20190110
  12. ZYRTEC [Concomitant]
     Active Substance: CETIRIZINE HYDROCHLORIDE
     Dosage: ONCE BEFORE INFUSION
     Route: 048
     Dates: start: 20180315, end: 20180315
  13. METHYLPREDNISOLONE. [Suspect]
     Active Substance: METHYLPREDNISOLONE
     Dosage: ONCE BEFORE INFUSION?VISIT 7
     Route: 042
     Dates: start: 20190717, end: 20190717
  14. AMANTIX [Concomitant]
     Indication: FATIGUE
     Route: 048
     Dates: start: 20190104, end: 20190530
  15. ZYRTEC [Concomitant]
     Active Substance: CETIRIZINE HYDROCHLORIDE
     Dosage: ONCE BEFORE INFUSION
     Route: 048
     Dates: start: 20170928, end: 20170928
  16. ZYRTEC [Concomitant]
     Active Substance: CETIRIZINE HYDROCHLORIDE
     Dosage: ONCE BEFORE INFUSION
     Route: 048
     Dates: start: 20190717, end: 20190717
  17. UNIDOX [DOXYCYCLINE MONOHYDRATE] [Concomitant]
     Active Substance: DOXYCYCLINE
     Indication: ACNE
     Route: 048
     Dates: start: 20190205, end: 20190228
  18. OCRELIZUMAB. [Suspect]
     Active Substance: OCRELIZUMAB
     Indication: RELAPSING-REMITTING MULTIPLE SCLEROSIS
     Dosage: ADMINISTERED INTRAVENOUSLY (IV) AS TWO 300-MILLIGRAM (MG) INFUSIONS (INFUSION LENGTH=2.5 HOURS) ON
     Route: 042
     Dates: start: 20170914
  19. OCRELIZUMAB. [Suspect]
     Active Substance: OCRELIZUMAB
     Dosage: VISIT 7?IT WAS MOST RECENT DOSE PRIOR TO SAE ONSET.
     Route: 042
     Dates: start: 20190131
  20. ZYRTEC [Concomitant]
     Active Substance: CETIRIZINE HYDROCHLORIDE
     Indication: PREMEDICATION
     Dosage: ONCE BEFORE INFUSION
     Route: 048
     Dates: start: 20170914, end: 20170914
  21. OCRELIZUMAB. [Suspect]
     Active Substance: OCRELIZUMAB
     Dosage: VISIT 8 (1)?IT WAS MOST RECENT DOSE PRIOR TO SAE ONSET.
     Route: 042
     Dates: start: 20190717
  22. METHYLPREDNISOLONE. [Suspect]
     Active Substance: METHYLPREDNISOLONE
     Dosage: ONCE BEFORE INFUSION?VISIT 7
     Route: 042
     Dates: start: 20190131, end: 20190131
  23. PARACETAMOL [Concomitant]
     Active Substance: ACETAMINOPHEN
     Indication: PREMEDICATION
     Dosage: ONCE BEFORE INFUSION
     Route: 048
     Dates: start: 20190131, end: 20190131
  24. IZOTEK [Concomitant]
     Indication: ACNE
     Route: 048
     Dates: start: 20190120, end: 20190320

REACTIONS (1)
  - Urinary tract infection [Recovered/Resolved]

NARRATIVE: CASE EVENT DATE: 20190311
